FAERS Safety Report 8569610 (Version 2)
Quarter: 2013Q1

REPORT INFORMATION
  Report Type: Spontaneous
  Country: CA (occurrence: CA)
  Receive Date: 20120518
  Receipt Date: 20130329
  Transmission Date: 20140127
  Serious: Yes (Other)
  Sender: FDA-Public Use
  Company Number: CA-JNJFOC-20120510493

PATIENT
  Sex: Female
  Weight: 68.8 kg

DRUGS (3)
  1. REMICADE [Suspect]
     Indication: COLITIS ULCERATIVE
     Dosage: 9TH INFUSION ??V1: 13TH INFUSION
     Route: 042
     Dates: start: 20120314
  2. REMICADE [Suspect]
     Indication: COLITIS ULCERATIVE
     Route: 042
     Dates: start: 20110207
  3. ALESSE [Concomitant]

REACTIONS (1)
  - Adenocarcinoma of the cervix [Unknown]
